FAERS Safety Report 24236327 (Version 1)
Quarter: 2024Q3

REPORT INFORMATION
  Report Type: Spontaneous
  Country: JP (occurrence: JP)
  Receive Date: 20240822
  Receipt Date: 20240822
  Transmission Date: 20241016
  Serious: Yes (Life-Threatening, Hospitalization)
  Sender: STRIDES
  Company Number: None

PATIENT
  Age: 62 Year
  Sex: Male

DRUGS (11)
  1. MYCOPHENOLATE MOFETIL [Suspect]
     Active Substance: MYCOPHENOLATE MOFETIL
     Indication: Immunosuppressant drug therapy
     Dosage: 1 GRAM, QD (ON POD 35, MYCOPHENOLATE MOFETIL WAS CHANGED TO 1 G/D ORALLY)
     Route: 048
  2. MYCOPHENOLATE MOFETIL [Suspect]
     Active Substance: MYCOPHENOLATE MOFETIL
     Dosage: 1 GRAM, QD (VIA ENTEROSTOMY AT 1 G/D)
     Route: 065
  3. TACROLIMUS [Suspect]
     Active Substance: TACROLIMUS
     Indication: Immunosuppressant drug therapy
     Dosage: UNK; ON POD 32, TACROLIMUS WAS CHANGED TO ORAL ADMINISTRATION WITH A TARGET TROUGH CONCENTRATION OF
     Route: 048
  4. TACROLIMUS [Suspect]
     Active Substance: TACROLIMUS
     Dosage: UNK; TARGET CONCENTRATION OF 15-18 NG/ML
     Route: 042
  5. PREDNISOLONE [Suspect]
     Active Substance: PREDNISOLONE
     Indication: Liver transplant rejection
     Dosage: 20 MILLIGRAM
     Route: 048
  6. PREDNISOLONE [Suspect]
     Active Substance: PREDNISOLONE
     Dosage: UNK; (TAPERED GRADUALLY FROM 20 MG/D)
     Route: 048
  7. METHYLPREDNISOLONE [Suspect]
     Active Substance: METHYLPREDNISOLONE
     Indication: Liver transplant rejection
     Dosage: 20 MILLIGRAM, QD (FROM POSTOPERATIVE DAYS (POD) 17 TO 32, TAPERING FROM 665 MG/D TO 20 MG/D)
     Route: 042
  8. METHYLPREDNISOLONE [Suspect]
     Active Substance: METHYLPREDNISOLONE
     Dosage: 665 MILLIGRAM, QD (FROM POSTOPERATIVE DAYS (POD) 17 TO 32, TAPERING FROM 665 MG/D TO 20 MG/D)
     Route: 042
  9. METHYLPREDNISOLONE [Suspect]
     Active Substance: METHYLPREDNISOLONE
     Dosage: FROM POSTOPERATIVE DAYS (POD) 17 TO 32, TAPERING FROM 665 MG/D TO 20 MG/D.
     Route: 042
  10. MICAFUNGIN [Concomitant]
     Active Substance: MICAFUNGIN SODIUM
     Indication: Antifungal treatment
     Dosage: 100 MILLIGRAM, QD
     Route: 048
  11. MICAFUNGIN [Concomitant]
     Active Substance: MICAFUNGIN SODIUM
     Dosage: 100 MILLIGRAM, QD
     Route: 065

REACTIONS (9)
  - Septic shock [Recovering/Resolving]
  - Atrial fibrillation [Recovered/Resolved]
  - Cardio-respiratory arrest [Recovered/Resolved]
  - Osteomyelitis [Recovering/Resolving]
  - Renal impairment [Recovering/Resolving]
  - Spinal compression fracture [Unknown]
  - Acidosis [Recovering/Resolving]
  - Urinary tract infection [Recovering/Resolving]
  - Klebsiella infection [Recovering/Resolving]
